FAERS Safety Report 8160399-X (Version None)
Quarter: 2012Q1

REPORT INFORMATION
  Report Type: 
  Country: None (occurrence: None)
  Receive Date: 20120223
  Receipt Date: 20120218
  Transmission Date: 20120608
  Serious: Yes (Other)
  Sender: FDA-Public Use
  Company Number: GB-PFIZER INC-2010165915

PATIENT
  Age: 45 Year
  Sex: Male
  Weight: 73 kg

DRUGS (5)
  1. SILDENAFIL CITRATE [Suspect]
     Indication: PULMONARY ARTERIAL HYPERTENSION
     Dosage: 10 MG, 3X/DAY
     Route: 040
     Dates: start: 20101120, end: 20101121
  2. ADRENALIN IN OIL INJ [Concomitant]
     Dosage: 0.073
     Route: 042
  3. MILRINONE [Concomitant]
     Dosage: 0.03
     Route: 042
  4. VASOPRESSIN AND ANALOGUES [Concomitant]
     Route: 042
  5. NOREPINEPHRINE BITARTRATE [Concomitant]
     Dosage: 0.03
     Route: 042

REACTIONS (3)
  - HYPOTENSION [None]
  - PERICARDIAL EFFUSION [None]
  - CARDIAC TAMPONADE [None]
